FAERS Safety Report 16295970 (Version 2)
Quarter: 2020Q1

REPORT INFORMATION
  Report Type: Spontaneous
  Country: GB (occurrence: GB)
  Receive Date: 20190510
  Receipt Date: 20200110
  Transmission Date: 20200409
  Serious: Yes (Disabling, Other)
  Sender: FDA-Public Use
  Company Number: GB-AUROBINDO-AUR-APL-2019-024936

PATIENT
  Age: 36 Year
  Sex: Male

DRUGS (8)
  1. PREGABALIN. [Concomitant]
     Active Substance: PREGABALIN
     Indication: PRODUCT USED FOR UNKNOWN INDICATION
     Dosage: 600 MILLIGRAM, ONCE A DAY
     Route: 048
  2. DULOXETINE 20 MG GASTRO RESISTANT CAPSULES [Suspect]
     Active Substance: DULOXETINE
     Indication: ANXIETY
     Dosage: 30 MILLIGRAM
     Route: 048
  3. DULOXETINE 20 MG GASTRO RESISTANT CAPSULES [Suspect]
     Active Substance: DULOXETINE
     Indication: DEPRESSION
     Dosage: 60 MILLIGRAM
     Route: 048
  4. MIRTAZAPINE. [Concomitant]
     Active Substance: MIRTAZAPINE
     Indication: PRODUCT USED FOR UNKNOWN INDICATION
     Dosage: 15 MILLIGRAM, ONCE A DAY
     Route: 048
  5. PROPRANOLOL [Concomitant]
     Active Substance: PROPRANOLOL HYDROCHLORIDE
     Indication: PRODUCT USED FOR UNKNOWN INDICATION
     Dosage: 80 MILLIGRAM, DAILY
     Route: 048
  6. AMISULPRIDE [Concomitant]
     Active Substance: AMISULPRIDE
     Indication: PRODUCT USED FOR UNKNOWN INDICATION
     Dosage: 100 MILLIGRAM, ONCE A DAY
     Route: 048
  7. DULOXETINE 20 MG GASTRO RESISTANT CAPSULES [Suspect]
     Active Substance: DULOXETINE
     Dosage: 20 MILLIGRAM, DAILY
     Route: 048
     Dates: start: 201902, end: 20190328
  8. DULOXETINE 20 MG GASTRO RESISTANT CAPSULES [Suspect]
     Active Substance: DULOXETINE
     Dosage: 20 MILLIGRAM, DAILY
     Route: 048
     Dates: start: 20190402

REACTIONS (9)
  - Withdrawal syndrome [Recovered/Resolved]
  - Suicidal ideation [Recovered/Resolved]
  - Irritability [Recovered/Resolved]
  - Nausea [Recovered/Resolved]
  - Dizziness [Recovered/Resolved]
  - Off label use [Not Recovered/Not Resolved]
  - Paraesthesia [Recovered/Resolved]
  - Panic attack [Recovered/Resolved]
  - Drug ineffective [Not Recovered/Not Resolved]

NARRATIVE: CASE EVENT DATE: 20190330
